FAERS Safety Report 4389944-7 (Version None)
Quarter: 2004Q2

REPORT INFORMATION
  Report Type: 
  Country: None (occurrence: None)
  Receive Date: 20040630
  Receipt Date: 20040615
  Transmission Date: 20050107
  Serious: Yes (Hospitalization)
  Sender: FDA-Public Use
  Company Number: 2004SE02508

PATIENT
  Age: 18 Year
  Sex: Female

DRUGS (5)
  1. DIPRIVAN [Suspect]
     Indication: ARTHROSCOPY
     Dosage: 210 MG ONCE IV
     Route: 042
     Dates: start: 20040430, end: 20040430
  2. MARCAIN-ADRENALIN [Concomitant]
  3. XYLOCAINE [Concomitant]
  4. ULTIVA [Concomitant]
  5. KETORAX [Concomitant]

REACTIONS (3)
  - DYSKINESIA [None]
  - NERVOUS SYSTEM DISORDER [None]
  - PAIN [None]
